FAERS Safety Report 9781923 (Version 1)
Quarter: 2013Q4

REPORT INFORMATION
  Report Type: Spontaneous
  Country: US (occurrence: US)
  Receive Date: 20131225
  Receipt Date: 20131225
  Transmission Date: 20140711
  Serious: Yes (Other)
  Sender: FDA-Public Use
  Company Number: US-SA-2013SA134272

PATIENT
  Age: 59 Year
  Sex: Male

DRUGS (2)
  1. LANTUS SOLOSTAR [Suspect]
     Indication: TYPE 2 DIABETES MELLITUS
     Dosage: DOSE:25 UNIT(S)
     Route: 058
     Dates: start: 2007
  2. SOLOSTAR [Concomitant]
     Dates: start: 2007

REACTIONS (4)
  - Bipolar disorder [Unknown]
  - Hypertension [Unknown]
  - Malaise [Unknown]
  - Pain [Unknown]
